FAERS Safety Report 10253812 (Version 1)
Quarter: 2014Q2

REPORT INFORMATION
  Report Type: Spontaneous
  Country: US (occurrence: US)
  Receive Date: 20140623
  Receipt Date: 20140623
  Transmission Date: 20141212
  Serious: No
  Sender: FDA-Public Use
  Company Number: US-ZOGENIX, INC.-2011ZX000537

PATIENT
  Sex: Female
  Weight: 77.18 kg

DRUGS (7)
  1. SUMAVEL DOSEPRO [Suspect]
     Indication: MIGRAINE
  2. CYMBALTA [Concomitant]
     Route: 048
  3. NEURONTIN [Concomitant]
     Indication: MIGRAINE
     Route: 048
  4. AMBIEN [Concomitant]
     Indication: SLEEP DISORDER
     Route: 048
  5. DIAZEPAM [Concomitant]
     Indication: ANXIETY
     Route: 048
  6. MORPHINE [Concomitant]
     Indication: PAIN
     Route: 048
  7. TOPAMAX [Concomitant]
     Indication: MIGRAINE
     Route: 048

REACTIONS (1)
  - Injection site pain [Recovered/Resolved]
